FAERS Safety Report 24399228 (Version 2)
Quarter: 2025Q1

REPORT INFORMATION
  Report Type: Spontaneous
  Country: US (occurrence: US)
  Receive Date: 20241004
  Receipt Date: 20250103
  Transmission Date: 20250408
  Serious: Yes (Other)
  Sender: ALEXION PHARMACEUTICALS
  Company Number: US-AstraZeneca-CH-00715743A

PATIENT

DRUGS (12)
  1. VOYDEYA [Suspect]
     Active Substance: DANICOPAN
     Route: 065
  2. VOYDEYA [Suspect]
     Active Substance: DANICOPAN
     Route: 065
  3. VOYDEYA [Suspect]
     Active Substance: DANICOPAN
     Route: 065
  4. VOYDEYA [Suspect]
     Active Substance: DANICOPAN
     Route: 065
  5. SOLIRIS [Suspect]
     Active Substance: ECULIZUMAB
     Route: 065
  6. SOLIRIS [Suspect]
     Active Substance: ECULIZUMAB
     Route: 065
  7. SOLIRIS [Suspect]
     Active Substance: ECULIZUMAB
     Route: 065
  8. SOLIRIS [Suspect]
     Active Substance: ECULIZUMAB
     Route: 065
  9. ULTOMIRIS [Suspect]
     Active Substance: RAVULIZUMAB-CWVZ
     Route: 065
  10. ULTOMIRIS [Suspect]
     Active Substance: RAVULIZUMAB-CWVZ
     Route: 065
  11. ULTOMIRIS [Suspect]
     Active Substance: RAVULIZUMAB-CWVZ
     Route: 065
  12. ULTOMIRIS [Suspect]
     Active Substance: RAVULIZUMAB-CWVZ
     Route: 065

REACTIONS (4)
  - Haemoglobinuria [Unknown]
  - Breakthrough haemolysis [Unknown]
  - Intravascular haemolysis [Unknown]
  - Headache [Unknown]
